FAERS Safety Report 6856497-0 (Version None)
Quarter: 2010Q3

REPORT INFORMATION
  Report Type: 
  Country: None (occurrence: None)
  Receive Date: 20100719
  Receipt Date: 20100625
  Transmission Date: 20110219
  Serious: Yes (Death, Hospitalization)
  Sender: FDA-Public Use
  Company Number: IL-ROCHE-706584

PATIENT
  Age: 70 Year
  Sex: Female

DRUGS (26)
  1. CEFTRIAXONE SODIUM [Suspect]
     Indication: PNEUMONIA
     Route: 065
  2. AMITRIPTYLINE HYDROCHLORIDE [Suspect]
     Route: 065
  3. METFORMIN [Suspect]
     Route: 065
  4. GLYBURIDE [Suspect]
     Route: 065
  5. CIPROFLOXACIN [Suspect]
     Indication: BACTERAEMIA
     Route: 065
  6. VERAPAMIL [Suspect]
     Indication: HYPERTENSION
     Route: 065
  7. ENALAPRIL MALEATE [Suspect]
     Indication: HYPERTENSION
     Route: 065
  8. ASPIRIN [Suspect]
     Dosage: OTHER INDICATION: HYPERTENSION
     Route: 065
  9. SIMVASTATIN [Suspect]
     Route: 065
  10. THEOPHYLLINE [Suspect]
     Route: 065
  11. FUROSEMIDE [Suspect]
     Indication: HYPERTENSION
     Route: 065
  12. CITALOPRAM HYDROBROMIDE [Suspect]
     Route: 065
  13. OMEPRAZOLE [Suspect]
     Indication: PRODUCT USED FOR UNKNOWN INDICATION
     Route: 065
  14. IMMUNE GLOBULIN INTRAVENOUS (HUMAN) [Suspect]
     Indication: PRODUCT USED FOR UNKNOWN INDICATION
     Route: 065
  15. VANCOMYCIN [Suspect]
     Indication: BACTERAEMIA
     Route: 065
  16. LEVOFLOXACIN [Suspect]
     Indication: BACTERAEMIA
     Route: 065
  17. AMPICILLIN AND SULBACTAM [Suspect]
     Indication: BACTERAEMIA
     Route: 065
  18. PIPERACILLIN AND TAZOBACTAM [Suspect]
     Indication: BACTERAEMIA
     Route: 065
  19. AMIKACIN SULFATE [Suspect]
     Indication: BACTERAEMIA
     Route: 065
  20. HYDROCORTISONE [Suspect]
     Indication: TOXIC EPIDERMAL NECROLYSIS
     Route: 065
  21. HEPATITIS B IMMUNE GLOBULIN (HUMAN) [Suspect]
     Indication: PRODUCT USED FOR UNKNOWN INDICATION
     Dosage: 40 GRAM(S);INTRAVENOUS INFUSION;INTRAVENOUS BOLUS;DAILY UNKNOWN, THERAPY : 4 DAYS
     Route: 040
  22. TAZOBACTAM [Suspect]
     Indication: PRODUCT USED FOR UNKNOWN INDICATION
     Route: 065
  23. DORZOLAMIDE HYDROCHLORIDE [Concomitant]
     Indication: GLAUCOMA
  24. LATANOPROST EYE DROPS [Concomitant]
     Indication: GLAUCOMA
  25. MAGNESIUM SULFATE [Concomitant]
  26. DEXTROSE [Concomitant]

REACTIONS (5)
  - ACUTE RESPIRATORY DISTRESS SYNDROME [None]
  - BACTERAEMIA [None]
  - HAEMORRHAGE INTRACRANIAL [None]
  - HYPOGLYCAEMIA [None]
  - TOXIC EPIDERMAL NECROLYSIS [None]
